FAERS Safety Report 12964185 (Version 1)
Quarter: 2016Q4

REPORT INFORMATION
  Report Type: Spontaneous
  Country: JP (occurrence: JP)
  Receive Date: 20161122
  Receipt Date: 20161122
  Transmission Date: 20170207
  Serious: Yes (Hospitalization)
  Sender: FDA-Public Use
  Company Number: JP-ELI_LILLY_AND_COMPANY-JP201610006934

PATIENT
  Age: 46 Year
  Sex: Male

DRUGS (9)
  1. STRATTERA [Suspect]
     Active Substance: ATOMOXETINE HYDROCHLORIDE
     Indication: PRODUCT USED FOR UNKNOWN INDICATION
     Dosage: UNK
     Route: 048
     Dates: start: 201610, end: 201610
  2. CRESTOR [Concomitant]
     Active Substance: ROSUVASTATIN CALCIUM
     Dosage: UNK
  3. TRICOR                             /00499301/ [Concomitant]
     Dosage: UNK
  4. STRATTERA [Suspect]
     Active Substance: ATOMOXETINE HYDROCHLORIDE
     Dosage: UNK
     Route: 048
     Dates: start: 20161007
  5. YOKUKANSAN [Concomitant]
     Active Substance: HERBALS
     Dosage: UNK
  6. TETRAMIDE [Concomitant]
     Active Substance: MIANSERIN
     Dosage: UNK
  7. LUNESTA [Concomitant]
     Active Substance: ESZOPICLONE
     Dosage: UNK
  8. URSO [Concomitant]
     Active Substance: URSODIOL
     Dosage: UNK
  9. FEBURIC [Concomitant]
     Active Substance: FEBUXOSTAT
     Dosage: UNK

REACTIONS (1)
  - Hepatic function abnormal [Recovered/Resolved]

NARRATIVE: CASE EVENT DATE: 201610
